FAERS Safety Report 15491547 (Version 3)
Quarter: 2018Q4

REPORT INFORMATION
  Report Type: Report from Study
  Country: US (occurrence: US)
  Receive Date: 20181012
  Receipt Date: 20181213
  Transmission Date: 20190205
  Serious: Yes (Death, Hospitalization, Other)
  Sender: FDA-Public Use
  Company Number: US-ROCHE-2142815

PATIENT
  Age: 75 Year
  Sex: Female
  Weight: 74.4 kg

DRUGS (2)
  1. ATEZOLIZUMAB. [Suspect]
     Active Substance: ATEZOLIZUMAB
     Indication: OVARIAN EPITHELIAL CANCER
     Dosage: LAST DOSE OF ATEZOLIZUMAB: 16/JUL/2018
     Route: 042
     Dates: start: 20180528
  2. GUADECITABINE [Suspect]
     Active Substance: GUADECITABINE
     Indication: OVARIAN EPITHELIAL CANCER
     Dosage: LAST DOSE OF GUADECITABINE: 29/JUN/2018
     Route: 058
     Dates: start: 20180521

REACTIONS (4)
  - Fatigue [Unknown]
  - Neutrophil count decreased [Unknown]
  - White blood cell count decreased [Unknown]
  - Hyponatraemia [Recovered/Resolved]

NARRATIVE: CASE EVENT DATE: 20180611
